FAERS Safety Report 22366114 (Version 1)
Quarter: 2023Q2

REPORT INFORMATION
  Report Type: Other
  Country: CN (occurrence: CN)
  Receive Date: 20230525
  Receipt Date: 20230525
  Transmission Date: 20230722
  Serious: Yes (Life-Threatening)
  Sender: FDA-Public Use
  Company Number: CN-GE HEALTHCARE-2023CSU004079

PATIENT
  Age: 34 Year
  Sex: Female
  Weight: 60 kg

DRUGS (3)
  1. OMNIPAQUE [Suspect]
     Active Substance: IOHEXOL
     Indication: Computerised tomogram thorax
     Dosage: 70 ML, VIA HIGH PRESSURE INJECTION, ONCE
     Route: 040
     Dates: start: 20230427, end: 20230427
  2. OMNIPAQUE [Suspect]
     Active Substance: IOHEXOL
     Indication: Bronchiectasis
  3. OMNIPAQUE [Suspect]
     Active Substance: IOHEXOL
     Indication: Infection

REACTIONS (5)
  - Painful respiration [Recovering/Resolving]
  - Dizziness [Recovering/Resolving]
  - Dyspnoea [Recovering/Resolving]
  - Rash [Recovering/Resolving]
  - Pruritus [Recovering/Resolving]

NARRATIVE: CASE EVENT DATE: 20230427
